FAERS Safety Report 19432325 (Version 2)
Quarter: 2021Q3

REPORT INFORMATION
  Report Type: Spontaneous
  Country: US (occurrence: US)
  Receive Date: 20210617
  Receipt Date: 20210917
  Transmission Date: 20211014
  Serious: No
  Sender: FDA-Public Use
  Company Number: US-CATALYST PHARMACEUTICALS, INC-2021CAT00222

PATIENT
  Sex: Male
  Weight: 82.54 kg

DRUGS (21)
  1. FIRDAPSE [Suspect]
     Active Substance: AMIFAMPRIDINE PHOSPHATE
     Dosage: 10 MG (1 TABLET), 3X/DAY
     Route: 048
     Dates: start: 2021
  2. LISINOPRIL. [Concomitant]
     Active Substance: LISINOPRIL
     Dosage: 10 MG, 1X/DAY
  3. VITAMIN C [Concomitant]
     Active Substance: ASCORBIC ACID
  4. POTASSIUM CHLORIDE. [Concomitant]
     Active Substance: POTASSIUM CHLORIDE
  5. TESTOSTERONE. [Concomitant]
     Active Substance: TESTOSTERONE
     Dosage: UNK, 2X/MONTH
  6. UNSPECIFIED SINUS CONGESTION MEDICATION [Concomitant]
     Dosage: UNK, AS NEEDED
  7. CIALIS [Concomitant]
     Active Substance: TADALAFIL
  8. FIRDAPSE [Suspect]
     Active Substance: AMIFAMPRIDINE PHOSPHATE
     Dosage: 5 MG, 3X/DAY
     Route: 048
     Dates: start: 2021, end: 2021
  9. FIRDAPSE [Suspect]
     Active Substance: AMIFAMPRIDINE PHOSPHATE
     Dosage: INCREASED DOSE
     Route: 048
     Dates: start: 2021, end: 2021
  10. VITAMIN B12 [Concomitant]
     Active Substance: CYANOCOBALAMIN
  11. FOLIC ACID. [Concomitant]
     Active Substance: FOLIC ACID
  12. FIRDAPSE [Suspect]
     Active Substance: AMIFAMPRIDINE PHOSPHATE
     Indication: MYASTHENIC SYNDROME
     Dosage: 15 MG, 3X/DAY
     Route: 048
     Dates: start: 20210422, end: 2021
  13. FIRDAPSE [Suspect]
     Active Substance: AMIFAMPRIDINE PHOSPHATE
     Dosage: 5 MG, 3X/DAY
     Route: 048
     Dates: start: 2021, end: 2021
  14. FLOMAX [Concomitant]
     Active Substance: TAMSULOSIN HYDROCHLORIDE
     Dosage: 0.4 MG, 1X/DAY
  15. CHILD^S ASPIRIN [Concomitant]
     Dosage: 1 DOSAGE UNIT
  16. LEVOTHYROXINE SODIUM. [Concomitant]
     Active Substance: LEVOTHYROXINE SODIUM
     Dosage: 100 ^MG^, 1X/DAY
  17. UNSPECIFIED ALLERGY PILLS [Concomitant]
     Dosage: UNK, AS NEEDED
  18. METOPROLOL. [Concomitant]
     Active Substance: METOPROLOL
     Dosage: 100 MG, 1X/DAY
  19. VITAMIN D3 [Concomitant]
     Active Substance: CHOLECALCIFEROL
  20. BIOTIN [Concomitant]
     Active Substance: BIOTIN
  21. VITAMIN B [Concomitant]
     Active Substance: VITAMIN B

REACTIONS (18)
  - Penis disorder [Unknown]
  - Increased appetite [Unknown]
  - Disorientation [Recovered/Resolved]
  - Therapeutic response unexpected [Not Recovered/Not Resolved]
  - Memory impairment [Unknown]
  - Spontaneous penile erection [Unknown]
  - Vertigo [Recovered/Resolved]
  - Drug ineffective [Not Recovered/Not Resolved]
  - Vision blurred [Unknown]
  - Hypoaesthesia [Unknown]
  - Body height decreased [Not Recovered/Not Resolved]
  - Dizziness [Recovered/Resolved]
  - Middle insomnia [Not Recovered/Not Resolved]
  - Sleep disorder [Not Recovered/Not Resolved]
  - Muscular weakness [Unknown]
  - Accidental overdose [Recovered/Resolved]
  - Pain in extremity [Not Recovered/Not Resolved]
  - Initial insomnia [Not Recovered/Not Resolved]

NARRATIVE: CASE EVENT DATE: 2021
